FAERS Safety Report 21569184 (Version 2)
Quarter: 2022Q4

REPORT INFORMATION
  Report Type: Report from Study
  Country: CA (occurrence: CA)
  Receive Date: 20221109
  Receipt Date: 20221121
  Transmission Date: 20230113
  Serious: Yes (Other)
  Sender: FDA-Public Use
  Company Number: CA-BRISTOL-MYERS SQUIBB COMPANY-2022-094226

PATIENT
  Age: 70 Year
  Sex: Male
  Weight: 69.3 kg

DRUGS (3)
  1. OPDIVO [Suspect]
     Active Substance: NIVOLUMAB
     Indication: Oesophageal carcinoma
     Route: 042
     Dates: start: 20220809
  2. OPDIVO [Suspect]
     Active Substance: NIVOLUMAB
     Route: 042
     Dates: start: 20220809
  3. LIOTHYRONINE SODIUM [Concomitant]
     Active Substance: LIOTHYRONINE SODIUM
     Indication: Product used for unknown indication
     Route: 065

REACTIONS (40)
  - Malaise [Not Recovered/Not Resolved]
  - COVID-19 [Unknown]
  - Myalgia [Unknown]
  - Fatigue [Unknown]
  - Rash [Not Recovered/Not Resolved]
  - Stomatitis [Unknown]
  - Diplopia [Unknown]
  - Gait disturbance [Recovering/Resolving]
  - Abdominal pain [Not Recovered/Not Resolved]
  - Memory impairment [Not Recovered/Not Resolved]
  - Irritability [Not Recovered/Not Resolved]
  - Headache [Unknown]
  - Back pain [Recovering/Resolving]
  - Decreased appetite [Recovering/Resolving]
  - Nausea [Unknown]
  - Weight decreased [Unknown]
  - Rhinorrhoea [Recovering/Resolving]
  - Skin discolouration [Not Recovered/Not Resolved]
  - Blister [Recovering/Resolving]
  - Increased appetite [Recovered/Resolved]
  - Diarrhoea [Not Recovered/Not Resolved]
  - Paraesthesia [Not Recovered/Not Resolved]
  - Balance disorder [Not Recovered/Not Resolved]
  - Lacrimation increased [Recovering/Resolving]
  - Gastrooesophageal reflux disease [Unknown]
  - Hypoaesthesia [Unknown]
  - Asthenia [Unknown]
  - Dyspnoea [Unknown]
  - Confusional state [Unknown]
  - Somnolence [Recovering/Resolving]
  - Oedema peripheral [Unknown]
  - Abnormal faeces [Unknown]
  - Abdominal pain upper [Recovered/Resolved]
  - Chromaturia [Unknown]
  - Pollakiuria [Unknown]
  - Dysphonia [Unknown]
  - Oedema [Unknown]
  - Condition aggravated [Not Recovered/Not Resolved]
  - Intentional product use issue [Unknown]
  - Haemoglobin decreased [Unknown]
